FAERS Safety Report 13917247 (Version 1)
Quarter: 2017Q3

REPORT INFORMATION
  Report Type: Report from Study
  Country: US (occurrence: US)
  Receive Date: 20170829
  Receipt Date: 20170829
  Transmission Date: 20171127
  Serious: Yes (Other)
  Sender: FDA-Public Use
  Company Number: US-GILEAD-2017-0290197

PATIENT
  Age: 89 Year
  Sex: Female

DRUGS (2)
  1. RANOLAZINE. [Suspect]
     Active Substance: RANOLAZINE
     Indication: ANGINA PECTORIS
     Dosage: 500 MG, QD
     Route: 048
  2. RANOLAZINE. [Suspect]
     Active Substance: RANOLAZINE
     Dosage: 500 MG, BID
     Route: 048
     Dates: start: 20170202

REACTIONS (6)
  - Headache [Unknown]
  - Visual impairment [Unknown]
  - Intentional product misuse [Unknown]
  - Chromaturia [Recovered/Resolved]
  - Drug dose omission [Unknown]
  - Stent placement [Unknown]

NARRATIVE: CASE EVENT DATE: 201702
